FAERS Safety Report 4668286-6 (Version None)
Quarter: 2005Q2

REPORT INFORMATION
  Report Type: 
  Country: None (occurrence: None)
  Receive Date: 20050523
  Receipt Date: 20050307
  Transmission Date: 20051028
  Serious: Yes (Other)
  Sender: FDA-Public Use
  Company Number: PHBS2005BE03371

PATIENT
  Age: 53 Year
  Sex: Female

DRUGS (10)
  1. ZOMETA [Suspect]
     Indication: BREAST CANCER METASTATIC
     Dosage: 15 MG, QMO
     Route: 042
     Dates: start: 20030701, end: 20041101
  2. RADIOTHERAPY [Concomitant]
     Indication: METASTASES TO BONE
     Dosage: 30 GY OF D10-D12
     Route: 065
     Dates: start: 20000401
  3. RADIOTHERAPY [Concomitant]
     Dosage: 30 GY OF L3
     Route: 065
     Dates: start: 20020201
  4. FASLODEX [Concomitant]
     Route: 065
     Dates: start: 20000401
  5. FEMARA [Concomitant]
     Route: 065
     Dates: start: 20030701
  6. CYCLOPHOSPHAMIDE [Concomitant]
     Route: 065
     Dates: start: 20040119, end: 20040322
  7. METHOTREXATE [Concomitant]
     Route: 065
     Dates: start: 20040119, end: 20040322
  8. FLUOROURACIL [Concomitant]
     Route: 065
     Dates: start: 20040119, end: 20040322
  9. EXEMESTANE [Concomitant]
     Route: 065
     Dates: start: 20040701
  10. AREDIA [Suspect]
     Indication: BREAST CANCER METASTATIC
     Dosage: 90 MG, QMO
     Route: 042
     Dates: start: 20000401, end: 20030601

REACTIONS (9)
  - ABSCESS JAW [None]
  - EXCESSIVE GRANULATION TISSUE [None]
  - JAW DISORDER [None]
  - METASTASES TO LIVER [None]
  - OSTEOMYELITIS [None]
  - OSTEONECROSIS [None]
  - PAIN IN JAW [None]
  - PURULENT DISCHARGE [None]
  - WOUND DEBRIDEMENT [None]
